FAERS Safety Report 19421607 (Version 1)
Quarter: 2021Q2

REPORT INFORMATION
  Report Type: Spontaneous
  Country: US (occurrence: US)
  Receive Date: 20210615
  Receipt Date: 20210615
  Transmission Date: 20210717
  Serious: Yes (Hospitalization, Other)
  Sender: FDA-Public Use
  Company Number: None

PATIENT
  Age: 48 Year
  Sex: Female
  Weight: 81 kg

DRUGS (1)
  1. KETAMINE [Suspect]
     Active Substance: KETAMINE
     Indication: PAIN
     Dates: start: 20210531, end: 20210601

REACTIONS (4)
  - Pain [None]
  - Tinnitus [None]
  - Motor dysfunction [None]
  - Hallucination [None]

NARRATIVE: CASE EVENT DATE: 20210531
